FAERS Safety Report 10631604 (Version 1)
Quarter: 2014Q4

REPORT INFORMATION
  Report Type: Spontaneous
  Country: CA (occurrence: CA)
  Receive Date: 20141205
  Receipt Date: 20141205
  Transmission Date: 20150529
  Serious: Yes (Other)
  Sender: FDA-Public Use
  Company Number: CA-ROCHE-1503000

PATIENT
  Age: 12 Year
  Sex: Female
  Weight: 37 kg

DRUGS (2)
  1. NUTROPIN AQ [Suspect]
     Active Substance: SOMATROPIN
     Indication: PRODUCT USED FOR UNKNOWN INDICATION
     Dosage: THERAPY DURATION: 5 DAYS
     Route: 058
  2. L-THYROXINE [Concomitant]
     Active Substance: LEVOTHYROXINE

REACTIONS (3)
  - Dizziness [Recovered/Resolved]
  - Tremor [Recovered/Resolved]
  - Urticaria [Recovered/Resolved]
